FAERS Safety Report 6042065-X (Version None)
Quarter: 2009Q1

REPORT INFORMATION
  Report Type: 
  Country: None (occurrence: None)
  Receive Date: 20090116
  Receipt Date: 20080416
  Transmission Date: 20090719
  Serious: No
  Sender: FDA-Public Use
  Company Number: US-BAYER-200811746BCC

PATIENT
  Age: 81 Year
  Sex: Female
  Weight: 61 kg

DRUGS (3)
  1. ALEVE (CAPLET) [Suspect]
     Indication: PAIN IN EXTREMITY
     Dosage: TOTAL DAILY DOSE: 220 MG  UNIT DOSE: 220 MG
     Route: 048
     Dates: start: 20080415
  2. LOTREL [Concomitant]
  3. INDOMETHACIN [Concomitant]

REACTIONS (1)
  - SOMNOLENCE [None]
